FAERS Safety Report 7464271-X (Version None)
Quarter: 2011Q2

REPORT INFORMATION
  Report Type: 
  Country: None (occurrence: None)
  Receive Date: 20110509
  Receipt Date: 20110427
  Transmission Date: 20111010
  Serious: Yes (Other)
  Sender: FDA-Public Use
  Company Number: US-PAR PHARMACEUTICAL, INC-2011SCPR002945

PATIENT
  Sex: Female

DRUGS (2)
  1. CAPTOPRIL [Suspect]
     Dosage: 100 MG, UNK
     Route: 065
  2. CAPTOPRIL [Suspect]
     Indication: PRODUCT USED FOR UNKNOWN INDICATION
     Dosage: UNK, UNKNOWN
     Route: 065
     Dates: start: 20101101

REACTIONS (3)
  - DRUG INEFFECTIVE [None]
  - BLOOD PRESSURE ABNORMAL [None]
  - PRODUCT QUALITY ISSUE [None]
